FAERS Safety Report 18126753 (Version 1)
Quarter: 2020Q3

REPORT INFORMATION
  Report Type: Spontaneous
  Country: FR (occurrence: FR)
  Receive Date: 20200809
  Receipt Date: 20200809
  Transmission Date: 20201103
  Serious: Yes (Other)
  Sender: FDA-Public Use
  Company Number: FR-AUROBINDO-AUR-APL-2020-038057

PATIENT
  Age: 65 Year

DRUGS (5)
  1. CYTOTECT [Suspect]
     Active Substance: HUMAN CYTOMEGALOVIRUS IMMUNE GLOBULIN
     Indication: CYTOMEGALOVIRUS INFECTION
     Dosage: 1 DOSAGE FORM
     Route: 065
     Dates: start: 20200526, end: 20200526
  2. CYTOTECT [Suspect]
     Active Substance: HUMAN CYTOMEGALOVIRUS IMMUNE GLOBULIN
     Dosage: 1 DOSAGE FORM
     Route: 065
     Dates: start: 20200626
  3. FOSCAVIR [Suspect]
     Active Substance: FOSCARNET SODIUM
     Indication: CYTOMEGALOVIRUS INFECTION
     Dosage: 8500 MILLIGRAM, TWO TIMES A DAY
     Route: 065
     Dates: start: 20200717
  4. VALGANCICLOVIR. [Suspect]
     Active Substance: VALGANCICLOVIR
     Indication: CYTOMEGALOVIRUS INFECTION
     Dosage: 900 MILLIGRAM, TWO TIMES A DAY
     Route: 065
     Dates: start: 20200526
  5. GANCICLOVIR. [Suspect]
     Active Substance: GANCICLOVIR
     Indication: CYTOMEGALOVIRUS INFECTION
     Dosage: 400 MILLIGRAM, TWO TIMES A DAY
     Route: 065
     Dates: start: 20200703

REACTIONS (3)
  - Off label use [Unknown]
  - Acute respiratory failure [Unknown]
  - Pulmonary oedema [Unknown]
